FAERS Safety Report 14029323 (Version 1)
Quarter: 2017Q3

REPORT INFORMATION
  Report Type: Spontaneous
  Country: US (occurrence: US)
  Receive Date: 20170930
  Receipt Date: 20170930
  Transmission Date: 20171128
  Serious: No
  Sender: FDA-Public Use
  Company Number: US-SA-2017SA088297

PATIENT
  Sex: Female

DRUGS (1)
  1. AUBAGIO [Suspect]
     Active Substance: TERIFLUNOMIDE
     Indication: EXPOSURE VIA PARTNER
     Dosage: AUBAGIO(14 MG/DAY) TAKEN BY FATHER FROM JAN 2016)  :LOT NO  :6FW1ASA;EXPIRY DATE :  JUNE 30,2019
     Route: 065

REACTIONS (1)
  - Paternal exposure timing unspecified [Unknown]
